FAERS Safety Report 4478042-X (Version None)
Quarter: 2004Q3

REPORT INFORMATION
  Report Type: 
  Country: None (occurrence: None)
  Receive Date: 20040923
  Receipt Date: 20040614
  Transmission Date: 20050211
  Serious: No
  Sender: FDA-Public Use
  Company Number: USA040670137

PATIENT
  Age: 57 Year
  Sex: Female
  Weight: 65 kg

DRUGS (5)
  1. FORTEO [Suspect]
     Indication: OSTEOPOROSIS
     Dates: start: 20040602
  2. MULTIVITAMIN [Concomitant]
  3. NASAL SPRAY (OXYMETAZOLINE HYDROCHLORIDE) [Concomitant]
  4. CLARITIN [Concomitant]
  5. CELEBREX [Concomitant]

REACTIONS (2)
  - BACK PAIN [None]
  - INJECTION SITE ERYTHEMA [None]
